FAERS Safety Report 21710393 (Version 1)
Quarter: 2022Q4

REPORT INFORMATION
  Report Type: Spontaneous
  Country: MA (occurrence: MA)
  Receive Date: 20221211
  Receipt Date: 20221211
  Transmission Date: 20230112
  Serious: Yes (Hospitalization, Other)
  Sender: FDA-Public Use
  Company Number: None

PATIENT
  Age: 16 Year
  Sex: Female

DRUGS (1)
  1. DAPSONE [Suspect]
     Active Substance: DAPSONE
     Indication: Product used for unknown indication
     Dates: start: 20211110

REACTIONS (3)
  - Suicide attempt [Unknown]
  - Toxicity to various agents [Recovering/Resolving]
  - Methaemoglobinaemia [Recovering/Resolving]

NARRATIVE: CASE EVENT DATE: 20211110
